FAERS Safety Report 5190092-7 (Version None)
Quarter: 2006Q4

REPORT INFORMATION
  Report Type: 
  Country: None (occurrence: None)
  Receive Date: 20061222
  Receipt Date: 20061215
  Transmission Date: 20070319
  Serious: Yes (Hospitalization)
  Sender: FDA-Public Use
  Company Number: US-JNJFOC-20060504958

PATIENT
  Sex: Female
  Weight: 73.48 kg

DRUGS (9)
  1. DURAGESIC-100 [Suspect]
     Indication: PAIN
     Route: 062
  2. PROZAC [Concomitant]
     Indication: DEPRESSION
     Route: 048
  3. PREMARIN [Concomitant]
     Indication: HORMONE REPLACEMENT THERAPY
     Route: 048
  4. LOPRESSOR [Concomitant]
     Indication: HYPERTENSION
     Route: 048
  5. SYNTHROID [Concomitant]
     Indication: HYPOTHYROIDISM
     Route: 048
  6. KLONOPIN [Concomitant]
     Indication: PAIN
     Route: 048
  7. TOPAMAX [Concomitant]
     Route: 048
  8. PARAFON FORTE [Concomitant]
     Indication: MUSCLE SPASMS
     Route: 048
  9. MS CONTIN [Concomitant]
     Indication: BREAKTHROUGH PAIN
     Dosage: 30 MG, 3 IN 24 HOURS, AS NEEDED, ORAL
     Route: 048

REACTIONS (4)
  - GASTRIC INFECTION [None]
  - INFECTION [None]
  - PHARMACEUTICAL PRODUCT COMPLAINT [None]
  - THERAPEUTIC RESPONSE DECREASED [None]
